FAERS Safety Report 25406262 (Version 1)
Quarter: 2025Q2

REPORT INFORMATION
  Report Type: Spontaneous
  Country: GB (occurrence: GB)
  Receive Date: 20250606
  Receipt Date: 20250606
  Transmission Date: 20250717
  Serious: Yes (Other)
  Sender: AUROBINDO
  Company Number: GB-MHRA-TPP26427795C3599763YC1747844759798

PATIENT
  Age: 40 Year
  Sex: Female
  Weight: 67 kg

DRUGS (3)
  1. METRONIDAZOLE [Suspect]
     Active Substance: METRONIDAZOLE
     Indication: Product used for unknown indication
     Dosage: TAKE ONE TABLET TWICE DAILY FOR 7 DAYS
     Route: 048
     Dates: start: 20250506, end: 20250513
  2. CLINDAMYCIN [Concomitant]
     Active Substance: CLINDAMYCIN
     Indication: Product used for unknown indication
     Dosage: UNK UNK, ONCE A DAY (APPLY ONE APPLICATORFUL INTO THE VAGINA AT NIGH)
     Route: 065
  3. SERTRALINE [Concomitant]
     Active Substance: SERTRALINE HYDROCHLORIDE
     Indication: Product used for unknown indication
     Dosage: TAKE 25MG (HALF A TABLET) ALTERNATE DAYS
     Route: 065
     Dates: start: 20220429

REACTIONS (3)
  - Rash [Recovered/Resolved]
  - Throat irritation [Recovered/Resolved]
  - Seasonal allergy [Unknown]
